FAERS Safety Report 6123593-5 (Version None)
Quarter: 2009Q1

REPORT INFORMATION
  Report Type: 
  Country: None (occurrence: None)
  Receive Date: 20090317
  Receipt Date: 20090317
  Transmission Date: 20090719
  Serious: Yes (Life-Threatening, Hospitalization)
  Sender: FDA-Public Use
  Company Number: None

PATIENT
  Sex: Female
  Weight: 36.2878 kg

DRUGS (6)
  1. RECLAST [Suspect]
     Indication: OSTEOPOROSIS
     Dosage: ANNUALLY
     Dates: start: 20090301
  2. ATORVASTATIN [Concomitant]
  3. BACLOFEN [Concomitant]
  4. COLACE [Concomitant]
  5. PRILOSEC [Concomitant]
  6. MIRALAX [Concomitant]

REACTIONS (2)
  - BODY TEMPERATURE DECREASED [None]
  - HYPOTENSION [None]
